FAERS Safety Report 6417252-9 (Version None)
Quarter: 2009Q4

REPORT INFORMATION
  Report Type: 
  Country: None (occurrence: None)
  Receive Date: 20091027
  Receipt Date: 20091027
  Transmission Date: 20100525
  Serious: Yes (Life-Threatening, Hospitalization, Other)
  Sender: FDA-Public Use
  Company Number: None

PATIENT
  Age: 51 Year
  Sex: Male
  Weight: 70 kg

DRUGS (7)
  1. ATENOLOL [Suspect]
     Indication: SUICIDE ATTEMPT
     Dosage: PO
     Route: 048
     Dates: start: 20090829
  2. AMLODIPINE [Suspect]
     Indication: SUICIDE ATTEMPT
     Dosage: PO
     Route: 048
     Dates: start: 20090829
  3. VALSARTAN [Suspect]
     Indication: SUICIDE ATTEMPT
     Dates: start: 20090829
  4. SIMVASTATIN [Suspect]
     Dosage: PO
     Route: 048
  5. BUPROPION HCL [Suspect]
     Dosage: 100 MG PO
     Route: 048
  6. WARFARIN SODIUM [Suspect]
     Dosage: PO
     Route: 048
  7. MVI CENTRUM 1 TAB PO QD [Suspect]
     Dosage: 1 TAB PO
     Route: 048

REACTIONS (8)
  - BLOOD PRESSURE DIASTOLIC DECREASED [None]
  - BLOOD PRESSURE DIASTOLIC INCREASED [None]
  - FLAT AFFECT [None]
  - INTERNATIONAL NORMALISED RATIO INCREASED [None]
  - LETHARGY [None]
  - MULTIPLE DRUG OVERDOSE [None]
  - RHABDOMYOLYSIS [None]
  - VOMITING [None]
